FAERS Safety Report 8018300-5 (Version None)
Quarter: 2012Q1

REPORT INFORMATION
  Report Type: 
  Country: None (occurrence: None)
  Receive Date: 20120103
  Receipt Date: 20111227
  Transmission Date: 20120608
  Serious: Yes (Hospitalization)
  Sender: FDA-Public Use
  Company Number: NO-SANOFI-AVENTIS-2011SA081094

PATIENT
  Age: 71 Year
  Sex: Female

DRUGS (7)
  1. ATROVENT [Concomitant]
  2. SIMVASTATIN [Concomitant]
     Dates: start: 20111101
  3. LEVOTHYROXINE SODIUM [Concomitant]
  4. ASPIRIN [Concomitant]
  5. VENTOLIN [Concomitant]
  6. MULTAQ [Suspect]
     Route: 048
     Dates: start: 20110301, end: 20111128
  7. BUMETANIDE [Concomitant]

REACTIONS (3)
  - CHRONIC OBSTRUCTIVE PULMONARY DISEASE [None]
  - DYSPNOEA [None]
  - UNDERDOSE [None]
